FAERS Safety Report 9094681 (Version 2)
Quarter: 2013Q1

REPORT INFORMATION
  Report Type: Spontaneous
  Country: AU (occurrence: AU)
  Receive Date: 20130220
  Receipt Date: 20130325
  Transmission Date: 20140127
  Serious: Yes (Hospitalization)
  Sender: FDA-Public Use
  Company Number: AU-BIOGENIDEC-2013BI015398

PATIENT
  Age: 64 Year
  Sex: Female

DRUGS (5)
  1. AVONEX [Suspect]
     Indication: MULTIPLE SCLEROSIS
     Route: 030
  2. ENDEP [Concomitant]
  3. MICARDIS [Concomitant]
  4. COVERSYL [Concomitant]
  5. MERSYNDOL [Concomitant]

REACTIONS (1)
  - Meningioma [Recovered/Resolved]
